FAERS Safety Report 9420885 (Version 1)
Quarter: 2013Q3

REPORT INFORMATION
  Report Type: Spontaneous
  Country: FR (occurrence: FR)
  Receive Date: 20130725
  Receipt Date: 20130725
  Transmission Date: 20140515
  Serious: Yes (Hospitalization)
  Sender: FDA-Public Use
  Company Number: FR-ASTRAZENECA-2013SE54248

PATIENT
  Age: 52 Year
  Sex: Male

DRUGS (10)
  1. MERONEM [Suspect]
     Indication: ENDOCARDITIS STAPHYLOCOCCAL
     Route: 042
     Dates: start: 201304, end: 20130617
  2. MERONEM [Suspect]
     Indication: INTERVERTEBRAL DISCITIS
     Route: 042
     Dates: start: 201304, end: 20130617
  3. VANCOMYCINE [Suspect]
     Route: 065
     Dates: start: 20130522, end: 20130618
  4. RIFAMPICINE [Suspect]
     Indication: ENDOCARDITIS STAPHYLOCOCCAL
     Route: 065
     Dates: start: 201304, end: 20130618
  5. RIFAMPICINE [Suspect]
     Indication: INTERVERTEBRAL DISCITIS
     Route: 065
     Dates: start: 201304, end: 20130618
  6. ATARAX [Concomitant]
  7. MORPHIN [Concomitant]
  8. PARACETAMOL [Concomitant]
  9. AMIODARONE [Concomitant]
  10. INEXIUM [Concomitant]

REACTIONS (8)
  - Drug reaction with eosinophilia and systemic symptoms [Unknown]
  - Myoclonus [Recovering/Resolving]
  - Confusional state [Recovering/Resolving]
  - Somnolence [Recovering/Resolving]
  - Nervous system disorder [Recovering/Resolving]
  - Lymphopenia [Recovering/Resolving]
  - Cholestasis [Recovering/Resolving]
  - Dermatitis exfoliative [Unknown]
